FAERS Safety Report 10188238 (Version 1)
Quarter: 2014Q2

REPORT INFORMATION
  Report Type: Spontaneous
  Country: US (occurrence: None)
  Receive Date: 20140521
  Receipt Date: 20140521
  Transmission Date: 20141212
  Serious: Yes (Other)
  Sender: FDA-Public Use
  Company Number: None

PATIENT
  Age: 69 Year
  Sex: Female
  Weight: 65.77 kg

DRUGS (1)
  1. VIGAMOX [Suspect]
     Indication: CONJUNCTIVITIS
     Dosage: 1 DROP 4X DAILY, FOUR TIMES DAILY
     Dates: start: 20140515, end: 20140517

REACTIONS (2)
  - Heart rate increased [None]
  - Heart rate increased [None]
